FAERS Safety Report 15959536 (Version 1)
Quarter: 2019Q1

REPORT INFORMATION
  Report Type: Spontaneous
  Country: GB (occurrence: GB)
  Receive Date: 20190214
  Receipt Date: 20190214
  Transmission Date: 20190417
  Serious: Yes (Hospitalization)
  Sender: FDA-Public Use
  Company Number: GB-ACCORD-107048

PATIENT
  Age: 75 Year
  Sex: Male
  Weight: 84 kg

DRUGS (10)
  1. ROPINIROLE/ROPINIROLE HYDROCHLORIDE [Suspect]
     Active Substance: ROPINIROLE HYDROCHLORIDE
     Indication: PRODUCT USED FOR UNKNOWN INDICATION
  2. CO-AMILOFRUSE [Concomitant]
     Active Substance: AMILORIDE\FUROSEMIDE
     Dosage: EACH MORNING
     Dates: start: 20180305
  3. CARBIDOPA/LEVODOPA [Concomitant]
     Dates: start: 20141114
  4. AMITRIPTYLINE/AMITRIPTYLINE HYDROCHLORIDE/AMITRIPTYLINE PAMOATE/AMITRIPTYLINOXIDE [Concomitant]
     Dosage: AT NIGHT TO HELP SLEEP
     Dates: start: 20170724, end: 20180615
  5. SINEMET [Concomitant]
     Active Substance: CARBIDOPA\LEVODOPA
     Dosage: AT 9:30PM (BEFORE BED)
  6. SENNA ALEXANDRINA [Concomitant]
     Active Substance: SENNA LEAF
     Indication: CONSTIPATION
     Dosage: AT NIGHT
     Dates: start: 20180515
  7. IPINNIA XL [Concomitant]
     Dosage: N THE MORNING
     Dates: start: 20170120, end: 20180316
  8. BENSERAZIDE HYDROCHLORIDE/LEVODOPA [Concomitant]
     Dosage: AT 7:00AM
     Dates: start: 20170731
  9. ROPINIROLE. [Concomitant]
     Active Substance: ROPINIROLE
     Dosage: IN THE MORNING
     Dates: start: 20180316, end: 20180529
  10. DOCUSATE [Concomitant]
     Active Substance: DOCUSATE
     Indication: CONSTIPATION
     Dates: start: 20180515

REACTIONS (1)
  - Acute psychosis [Recovered/Resolved]

NARRATIVE: CASE EVENT DATE: 20180519
